FAERS Safety Report 8904464 (Version 4)
Quarter: 2013Q1

REPORT INFORMATION
  Report Type: Spontaneous
  Country: BR (occurrence: BR)
  Receive Date: 20121112
  Receipt Date: 20130214
  Transmission Date: 20140127
  Serious: Yes (Other)
  Sender: FDA-Public Use
  Company Number: BR-ABBOTT-12P-020-1000903-00

PATIENT
  Age: 9 None
  Sex: Female
  Weight: 28 kg

DRUGS (4)
  1. DEPAKOTE [Suspect]
     Indication: EPILEPSY
     Dosage: 1 TABET IN THE MORNING AND 2 TABLETS AT NIGHT
     Route: 048
     Dates: start: 2010
  2. DEPAKOTE [Suspect]
     Indication: MUSCLE SPASMS
  3. DEPAKENE [Suspect]
     Indication: EPILEPSY
     Dosage: DOSAGE DECREASED
     Route: 048
     Dates: start: 2009
  4. DEPAKENE [Suspect]
     Indication: MUSCLE SPASMS
     Route: 048

REACTIONS (8)
  - Syncope [Unknown]
  - Convulsion [Unknown]
  - Pallor [Recovering/Resolving]
  - Chest pain [Not Recovered/Not Resolved]
  - Decreased appetite [Recovered/Resolved]
  - Memory impairment [Not Recovered/Not Resolved]
  - Anxiety [Unknown]
  - Alopecia [None]
